FAERS Safety Report 5311973-7 (Version None)
Quarter: 2007Q2

REPORT INFORMATION
  Report Type: 
  Country: None (occurrence: None)
  Receive Date: 20070430
  Receipt Date: 20061107
  Transmission Date: 20071010
  Serious: Yes (Other)
  Sender: FDA-Public Use
  Company Number: 2006UW10345

PATIENT
  Age: 718 Month
  Sex: Female

DRUGS (2)
  1. NEXIUM [Suspect]
     Indication: GASTROOESOPHAGEAL REFLUX DISEASE
     Route: 048
  2. PRILOSEC [Concomitant]

REACTIONS (13)
  - ABDOMINAL PAIN [None]
  - DIARRHOEA [None]
  - DRY MOUTH [None]
  - FACE OEDEMA [None]
  - FATIGUE [None]
  - HEADACHE [None]
  - INFLUENZA LIKE ILLNESS [None]
  - MOUTH HAEMORRHAGE [None]
  - MUSCLE SPASMS [None]
  - NAUSEA [None]
  - ORAL SOFT TISSUE DISORDER [None]
  - PYREXIA [None]
  - VOMITING [None]
